FAERS Safety Report 11688778 (Version 1)
Quarter: 2015Q4

REPORT INFORMATION
  Report Type: Other
  Country: CA (occurrence: CA)
  Receive Date: 20151102
  Receipt Date: 20151102
  Transmission Date: 20160304
  Serious: Yes (Other)
  Sender: FDA-Public Use
  Company Number: CA-APOTEX-2015AP014005

PATIENT
  Age: 83 Year
  Weight: 90 kg

DRUGS (2)
  1. APO-CLOPIDOGREL [Suspect]
     Active Substance: CLOPIDOGREL BISULFATE
     Indication: HYPERTENSION
     Dosage: 1 DF, QD
     Route: 048
  2. PANTOPRAZOLE TEVA [Suspect]
     Active Substance: PANTOPRAZOLE SODIUM
     Indication: PROPHYLAXIS AGAINST GASTROINTESTINAL ULCER
     Dosage: 1 DF, QD
     Route: 048

REACTIONS (4)
  - Haemorrhoids [Recovered/Resolved]
  - Product substitution issue [Recovered/Resolved]
  - Frequent bowel movements [Recovered/Resolved]
  - Anorectal discomfort [Recovered/Resolved]
